FAERS Safety Report 21655671 (Version 6)
Quarter: 2023Q2

REPORT INFORMATION
  Report Type: Spontaneous
  Country: JP (occurrence: JP)
  Receive Date: 20221129
  Receipt Date: 20230504
  Transmission Date: 20230721
  Serious: Yes (Other)
  Sender: FDA-Public Use
  Company Number: JP-MSD-2211JPN002960J

PATIENT
  Age: 53 Year
  Sex: Female
  Weight: 64 kg

DRUGS (8)
  1. KEYTRUDA [Suspect]
     Active Substance: PEMBROLIZUMAB
     Indication: Uterine cancer
     Dosage: 200 MILLIGRAM, Q3W
     Route: 041
     Dates: start: 20210907
  2. VEMLIDY [Concomitant]
     Active Substance: TENOFOVIR ALAFENAMIDE FUMARATE
     Dosage: 25 MILLIGRAM, QD
     Route: 048
  3. LEVETIRACETAM [Concomitant]
     Active Substance: LEVETIRACETAM
     Dosage: 1000 MILLIGRAM, BID
     Route: 048
  4. URAPIDIL [Concomitant]
     Active Substance: URAPIDIL
     Dosage: 15 MILLIGRAM, BID
     Route: 048
  5. MAGNESIUM OXIDE [Concomitant]
     Active Substance: MAGNESIUM OXIDE
     Dosage: 990 MILLIGRAM, TID
     Route: 048
  6. POTASSIUM ASPARTATE [Concomitant]
     Active Substance: POTASSIUM ASPARTATE
     Dosage: 1800 MILLIGRAM, TID
     Route: 048
  7. LOXOPROFEN SODIUM [Concomitant]
     Active Substance: LOXOPROFEN SODIUM
     Dosage: 60 MILLIGRAM, PRN
     Route: 048
  8. TEPRENONE [Concomitant]
     Active Substance: TEPRENONE
     Dosage: 50 MILLIGRAM, PRN
     Route: 048

REACTIONS (1)
  - Immune-mediated hepatic disorder [Recovered/Resolved]

NARRATIVE: CASE EVENT DATE: 20210928
